FAERS Safety Report 7412093-8 (Version None)
Quarter: 2011Q2

REPORT INFORMATION
  Report Type: 
  Country: None (occurrence: None)
  Receive Date: 20110413
  Receipt Date: 20110407
  Transmission Date: 20111010
  Serious: Yes (Other)
  Sender: FDA-Public Use
  Company Number: US-BAYER-2011-024057

PATIENT
  Age: 30 Year
  Sex: Female

DRUGS (2)
  1. YASMIN [Suspect]
  2. YAZ [Suspect]
     Indication: PRODUCT USED FOR UNKNOWN INDICATION
     Dosage: UNK

REACTIONS (6)
  - PAIN [None]
  - EMOTIONAL DISTRESS [None]
  - ANHEDONIA [None]
  - CHOLECYSTECTOMY [None]
  - INJURY [None]
  - THROMBOSIS [None]
